FAERS Safety Report 7389597-X (Version None)
Quarter: 2011Q2

REPORT INFORMATION
  Report Type: 
  Country: None (occurrence: None)
  Receive Date: 20110401
  Receipt Date: 20110321
  Transmission Date: 20111010
  Serious: Yes (Death, Hospitalization, Other)
  Sender: FDA-Public Use
  Company Number: US-BAXTER-2011BH000559

PATIENT
  Age: 48 Year
  Sex: Male

DRUGS (1)
  1. DIANEAL [Suspect]
     Indication: PERITONEAL DIALYSIS
     Route: 033
     Dates: start: 20100309, end: 20110106

REACTIONS (10)
  - SEPSIS [None]
  - UNEVALUABLE EVENT [None]
  - PALPITATIONS [None]
  - CARDIAC ARREST [None]
  - DYSPNOEA [None]
  - PERITONITIS [None]
  - INFECTION [None]
  - AMPUTATION [None]
  - CARDIAC DISORDER [None]
  - CARDIAC FAILURE [None]
